FAERS Safety Report 4425435-2 (Version None)
Quarter: 2004Q3

REPORT INFORMATION
  Report Type: 
  Country: None (occurrence: None)
  Receive Date: 20040813
  Receipt Date: 20040217
  Transmission Date: 20050211
  Serious: Yes (Death, Hospitalization)
  Sender: FDA-Public Use
  Company Number: US-ROCHE-359024

PATIENT
  Age: 51 Year
  Sex: Female

DRUGS (22)
  1. CAPECITABINE [Suspect]
     Indication: BREAST CANCER
     Dosage: INTERMITTENT THERAPY TWO WEEKS TREATMENT, ONE WEEK REST.
     Route: 048
     Dates: start: 20040108, end: 20040113
  2. IXABEPILONE [Suspect]
     Indication: BREAST CANCER
     Route: 042
     Dates: start: 20040108, end: 20040108
  3. SOLU-MEDROL [Concomitant]
     Dates: start: 20040128, end: 20040211
  4. PREDNISONE [Concomitant]
     Dates: start: 20040202
  5. ZOSYN [Concomitant]
     Dates: start: 20040128, end: 20040130
  6. LEVAQUIN [Concomitant]
     Dates: start: 20040130, end: 20040208
  7. CALCIUM GLUBIONATE [Concomitant]
     Dates: start: 20040203, end: 20040215
  8. DIGOXIN [Concomitant]
     Dates: start: 20040205, end: 20040205
  9. HEPARIN [Concomitant]
     Dates: start: 20040205, end: 20040205
  10. IBUTILIDE FUMARATE [Concomitant]
     Dates: start: 20040205, end: 20040205
  11. SINGULAIR [Concomitant]
     Dates: start: 20031113
  12. ADVAIR [Concomitant]
     Dates: start: 20031113
  13. MS CONTIN [Concomitant]
     Dates: start: 20031113
  14. MS CONTIN [Concomitant]
     Dates: start: 20031113
  15. LOVENOX [Concomitant]
     Dates: start: 20040113
  16. FLUCONAZOLE [Concomitant]
     Dates: start: 20040113, end: 20040123
  17. FLAGYL [Concomitant]
     Dates: start: 20040113
  18. LACTULOSE [Concomitant]
     Dates: start: 20040115
  19. TYLENOL [Concomitant]
     Dates: start: 20031115
  20. LASIX [Concomitant]
     Dates: start: 20031115
  21. FENTANYL [Concomitant]
     Dates: start: 20031115
  22. BACTRIM [Concomitant]
     Dates: start: 20030806

REACTIONS (18)
  - ATRIAL FIBRILLATION [None]
  - BREAST CANCER METASTATIC [None]
  - CARDIAC ARREST [None]
  - COMA [None]
  - DYSPNOEA [None]
  - FEEDING TUBE COMPLICATION [None]
  - FLUID OVERLOAD [None]
  - GASTROINTESTINAL HAEMORRHAGE [None]
  - GENERAL PHYSICAL HEALTH DETERIORATION [None]
  - HYPERGLYCAEMIA [None]
  - HYPERKALAEMIA [None]
  - HYPOTENSION [None]
  - MULTI-ORGAN FAILURE [None]
  - NEUTROPENIA [None]
  - PALMAR-PLANTAR ERYTHRODYSAESTHESIA SYNDROME [None]
  - PULMONARY OEDEMA [None]
  - RENAL FAILURE [None]
  - THROMBOCYTOPENIA [None]
